FAERS Safety Report 7685634-3 (Version None)
Quarter: 2011Q3

REPORT INFORMATION
  Report Type: 
  Country: None (occurrence: None)
  Receive Date: 20110816
  Receipt Date: 20110808
  Transmission Date: 20111222
  Serious: Yes (Other)
  Sender: FDA-Public Use
  Company Number: US-CEPHALON-US019967

PATIENT
  Sex: Female
  Weight: 79 kg

DRUGS (9)
  1. LODINE [Concomitant]
     Indication: CHRONIC FATIGUE SYNDROME
     Route: 048
  2. ENALAPRIL MALEATE AND HYDROCHLOROTHIAZIDE [Concomitant]
     Indication: HYPERTENSION
     Dosage: 10/25MG QD
     Route: 048
  3. LODINE [Concomitant]
     Indication: FIBROMYALGIA
  4. NEXIUM [Concomitant]
     Indication: GASTROOESOPHAGEAL REFLUX DISEASE
     Route: 048
  5. REQUIP [Concomitant]
     Indication: RESTLESS LEGS SYNDROME
     Route: 048
  6. PROVIGIL [Suspect]
     Route: 048
     Dates: end: 20070101
  7. ESTRADIOL [Concomitant]
     Indication: HORMONE REPLACEMENT THERAPY
     Route: 065
  8. PROVIGIL [Suspect]
     Indication: CHRONIC FATIGUE SYNDROME
     Route: 048
     Dates: start: 20060101
  9. PROVIGIL [Suspect]
     Route: 048
     Dates: start: 20070401

REACTIONS (1)
  - NEPHROLITHIASIS [None]
